FAERS Safety Report 8084043-5 (Version None)
Quarter: 2012Q1

REPORT INFORMATION
  Report Type: 
  Country: None (occurrence: None)
  Receive Date: 20120128
  Receipt Date: 20110126
  Transmission Date: 20120608
  Serious: No
  Sender: FDA-Public Use
  Company Number: US-ABBOTT-11P-163-0701385-00

PATIENT
  Sex: Female
  Weight: 24.788 kg

DRUGS (6)
  1. HUMIRA [Suspect]
     Indication: JUVENILE ARTHRITIS
     Dates: start: 20110101
  2. MELOXICAM [Concomitant]
     Indication: JUVENILE ARTHRITIS
  3. HUMIRA [Suspect]
     Indication: JUVENILE ARTHRITIS
     Dates: start: 20101001, end: 20110101
  4. FOLIC ACID [Concomitant]
     Indication: PRODUCT USED FOR UNKNOWN INDICATION
  5. METHOTREXATE [Concomitant]
     Indication: JUVENILE ARTHRITIS
  6. VITAMIN B-12 [Concomitant]
     Indication: PRODUCT USED FOR UNKNOWN INDICATION

REACTIONS (3)
  - JOINT EFFUSION [None]
  - JOINT SWELLING [None]
  - WEIGHT DECREASED [None]
